FAERS Safety Report 7102746-3 (Version None)
Quarter: 2010Q4

REPORT INFORMATION
  Report Type: 
  Country: None (occurrence: None)
  Receive Date: 20101115
  Receipt Date: 20101104
  Transmission Date: 20110411
  Serious: Yes (Hospitalization)
  Sender: FDA-Public Use
  Company Number: PHHO2010DE16714

PATIENT
  Sex: Male

DRUGS (4)
  1. NEORAL [Suspect]
     Indication: RENAL TRANSPLANT
     Dosage: 175 MG, BID
     Route: 048
     Dates: start: 20100831
  2. MYFORTIC [Suspect]
     Indication: RENAL TRANSPLANT
     Dosage: 1440 MG, BID
     Route: 048
     Dates: start: 20100831
  3. NO TREATMENT RECEIVED NOMED [Suspect]
     Indication: RENAL TRANSPLANT
     Dosage: NO TREATMENT
     Dates: start: 20100930
  4. PREDNISONE [Concomitant]
     Indication: RENAL TRANSPLANT
     Dosage: UNK

REACTIONS (5)
  - BLOOD CREATININE INCREASED [None]
  - DYSPNOEA [None]
  - PLEURAL EFFUSION [None]
  - THORACIC CAVITY DRAINAGE [None]
  - URINARY TRACT INFECTION [None]
